FAERS Safety Report 13449891 (Version 1)
Quarter: 2017Q2

REPORT INFORMATION
  Report Type: Spontaneous
  Country: US (occurrence: US)
  Receive Date: 20170417
  Receipt Date: 20170417
  Transmission Date: 20170830
  Serious: No
  Sender: FDA-Public Use
  Company Number: US-BION-20160216

PATIENT
  Age: 72 Year
  Sex: Male
  Weight: 57.15 kg

DRUGS (4)
  1. ASPIRIN. [Suspect]
     Active Substance: ASPIRIN
  2. METOPROLOL 50MG [Concomitant]
     Active Substance: METOPROLOL
     Dosage: 1 DOSAGE FORM TAKEN TWICE DAILY
  3. LISINOPRIL 30MG [Concomitant]
     Active Substance: LISINOPRIL
     Dosage: 1 DOSAGE FORM TAKEN ONCE DAILY AT NIGHT
  4. ALEVE [Suspect]
     Active Substance: NAPROXEN SODIUM
     Indication: MUSCULOSKELETAL PAIN
     Dosage: 1 DOSAGE FORM TAKEN EVERY 8 HOURS
     Route: 048

REACTIONS (2)
  - Pruritus [Recovered/Resolved]
  - Foreign body [Recovered/Resolved]

NARRATIVE: CASE EVENT DATE: 20160605
